FAERS Safety Report 6011982-9 (Version None)
Quarter: 2008Q4

REPORT INFORMATION
  Report Type: 
  Country: None (occurrence: None)
  Receive Date: 20081218
  Receipt Date: 20081020
  Transmission Date: 20090506
  Serious: No
  Sender: FDA-Public Use
  Company Number: US-ASTRAZENECA-2008UW23122

PATIENT
  Age: 58 Year
  Sex: Female
  Weight: 69.4 kg

DRUGS (5)
  1. CRESTOR [Suspect]
     Indication: BLOOD CHOLESTEROL
     Route: 048
     Dates: start: 20081014
  2. XANAX [Concomitant]
  3. LORTAB [Concomitant]
  4. ADVIL LIQUI-GELS [Concomitant]
  5. FELDENE [Concomitant]

REACTIONS (3)
  - HYPOTENSION [None]
  - NAUSEA [None]
  - PAIN [None]
